FAERS Safety Report 20775515 (Version 19)
Quarter: 2025Q3

REPORT INFORMATION
  Report Type: Report from Study
  Country: CO (occurrence: CO)
  Receive Date: 20220502
  Receipt Date: 20250911
  Transmission Date: 20251020
  Serious: Yes (Hospitalization, Other)
  Sender: TAKEDA
  Company Number: CO-TAKEDA-CO202025381

PATIENT
  Age: 56 Year
  Sex: Female
  Weight: 78 kg

DRUGS (4)
  1. ICATIBANT [Suspect]
     Active Substance: ICATIBANT ACETATE
     Indication: Hereditary angioedema
  2. ICATIBANT [Suspect]
     Active Substance: ICATIBANT ACETATE
     Indication: Immune system disorder
  3. ICATIBANT [Suspect]
     Active Substance: ICATIBANT ACETATE
  4. ICATIBANT [Suspect]
     Active Substance: ICATIBANT ACETATE

REACTIONS (23)
  - Pneumonia [Recovering/Resolving]
  - Nephrolithiasis [Recovering/Resolving]
  - Erythema [Recovered/Resolved]
  - Product storage error [Unknown]
  - Off label use [Unknown]
  - Poor quality product administered [Unknown]
  - Pain in extremity [Recovering/Resolving]
  - Application site erythema [Recovering/Resolving]
  - Malaise [Recovering/Resolving]
  - Back pain [Recovering/Resolving]
  - Discomfort [Recovering/Resolving]
  - Bronchitis [Recovering/Resolving]
  - Asthenia [Recovering/Resolving]
  - Breast inflammation [Unknown]
  - Dyspnoea [Unknown]
  - Arthralgia [Unknown]
  - Blood urine present [Unknown]
  - Influenza [Not Recovered/Not Resolved]
  - Rash [Not Recovered/Not Resolved]
  - Chest pain [Recovering/Resolving]
  - Pyrexia [Recovering/Resolving]
  - Headache [Recovering/Resolving]
  - Dizziness [Recovering/Resolving]

NARRATIVE: CASE EVENT DATE: 20200803
